FAERS Safety Report 4950112-9 (Version None)
Quarter: 2006Q1

REPORT INFORMATION
  Report Type: 
  Country: None (occurrence: None)
  Receive Date: 20060320
  Receipt Date: 20060320
  Transmission Date: 20060701
  Serious: Yes (Disabling, Other)
  Sender: FDA-Public Use
  Company Number: None

PATIENT
  Sex: Male
  Weight: 77.1115 kg

DRUGS (1)
  1. AMBIEN [Suspect]
     Indication: MIDDLE INSOMNIA
     Dosage: 1   PER NIGHT  SL
     Dates: start: 20051220, end: 20051223

REACTIONS (5)
  - ABNORMAL SLEEP-RELATED EVENT [None]
  - AMNESIA [None]
  - DYSARTHRIA [None]
  - REGRESSIVE BEHAVIOUR [None]
  - SLEEP WALKING [None]
